FAERS Safety Report 13338460 (Version 1)
Quarter: 2017Q1

REPORT INFORMATION
  Report Type: Spontaneous
  Country: US (occurrence: US)
  Receive Date: 20170315
  Receipt Date: 20170315
  Transmission Date: 20170428
  Serious: Yes (Hospitalization)
  Sender: FDA-Public Use
  Company Number: US-HORIZON-PEN-0113-2017

PATIENT
  Age: 88 Year
  Sex: Female

DRUGS (1)
  1. PENNSAID [Suspect]
     Active Substance: DICLOFENAC SODIUM
     Indication: BACK PAIN
     Dosage: 40 DROPS TOPICAL TWICE DAILY
     Route: 061

REACTIONS (4)
  - Herpes zoster [Unknown]
  - Intervertebral disc protrusion [Unknown]
  - Retinal artery occlusion [Unknown]
  - Off label use [Unknown]
